FAERS Safety Report 13313908 (Version 2)
Quarter: 2017Q2

REPORT INFORMATION
  Report Type: Spontaneous
  Country: US (occurrence: US)
  Receive Date: 20170309
  Receipt Date: 20170427
  Transmission Date: 20170830
  Serious: Yes (Death, Hospitalization, Other)
  Sender: FDA-Public Use
  Company Number: US-TEVA-746406USA

PATIENT
  Age: 48 Year
  Sex: Female

DRUGS (2)
  1. FENTANYL CITRATE. [Suspect]
     Active Substance: FENTANYL CITRATE
     Indication: BREAKTHROUGH PAIN
     Dosage: 6 LOZENGES PER DAY
     Route: 048
     Dates: start: 20150210
  2. ACTIQ [Suspect]
     Active Substance: FENTANYL CITRATE
     Indication: BREAKTHROUGH PAIN
     Route: 048

REACTIONS (5)
  - Uterine cancer [Fatal]
  - Peripheral swelling [Recovered/Resolved]
  - Metastatic uterine cancer [Fatal]
  - Malnutrition [Fatal]
  - Short-bowel syndrome [Fatal]

NARRATIVE: CASE EVENT DATE: 201502
